FAERS Safety Report 9425794 (Version 2)
Quarter: 2013Q3

REPORT INFORMATION
  Report Type: Spontaneous
  Country: JP (occurrence: JP)
  Receive Date: 20130729
  Receipt Date: 20130809
  Transmission Date: 20140515
  Serious: Yes (Hospitalization)
  Sender: FDA-Public Use
  Company Number: JP-009507513-1307JPN015091

PATIENT
  Age: 73 Year
  Sex: Male

DRUGS (4)
  1. MENESIT TABLETS - 100 [Suspect]
     Indication: PARKINSON^S DISEASE
     Dosage: 0.5 DF, QD
     Route: 048
     Dates: start: 20130422, end: 20130512
  2. MENESIT TABLETS - 100 [Suspect]
     Dosage: 1 DF, QD
     Route: 048
     Dates: start: 20130513, end: 20130527
  3. AMLODIN (AMLODIPINE BESYLATE) [Concomitant]
     Indication: HYPERTENSION
     Dosage: UNK , DAILY DOSE UNK
     Route: 048
  4. PREMINENT TABLETS [Concomitant]
     Indication: HYPERTENSION
     Dosage: UNK, DAILY DOSE UNKNOWN
     Route: 048

REACTIONS (2)
  - Dermatitis exfoliative [Recovering/Resolving]
  - Dermatitis exfoliative [Unknown]
